FAERS Safety Report 4377452-9 (Version None)
Quarter: 2004Q2

REPORT INFORMATION
  Report Type: 
  Country: None (occurrence: None)
  Receive Date: 20040609
  Receipt Date: 20040525
  Transmission Date: 20050107
  Serious: Yes (Hospitalization)
  Sender: FDA-Public Use
  Company Number: DE_040513667

PATIENT
  Age: 41 Year
  Sex: Male

DRUGS (4)
  1. ZYPREXA [Suspect]
     Indication: SCHIZOPHRENIA
     Dosage: 15 MG DAY
  2. PANTOZOL (PANTOPRAZOLE SODIUM) [Concomitant]
  3. DIAZEPAM [Concomitant]
  4. TAXILAN (PERAZINE) [Concomitant]

REACTIONS (3)
  - CONDITION AGGRAVATED [None]
  - CONVULSION [None]
  - PSYCHOTIC DISORDER [None]
